FAERS Safety Report 21897402 (Version 3)
Quarter: 2023Q1

REPORT INFORMATION
  Report Type: Spontaneous
  Country: US (occurrence: US)
  Receive Date: 20230123
  Receipt Date: 20230131
  Transmission Date: 20230418
  Serious: No
  Sender: FDA-Public Use
  Company Number: US-PFIZER INC-202300030869

PATIENT
  Age: 76 Year
  Sex: Male
  Weight: 99.79 kg

DRUGS (2)
  1. VYNDAMAX [Suspect]
     Active Substance: TAFAMIDIS
     Indication: Cardiac amyloidosis
     Dosage: 61 MG, 1X/DAY
     Dates: start: 20221029
  2. VYNDAMAX [Suspect]
     Active Substance: TAFAMIDIS
     Dosage: 61 MG, 1X/DAY (IN THE MORNING)
     Dates: start: 20221031

REACTIONS (3)
  - Cough [Recovered/Resolved]
  - Fatigue [Recovering/Resolving]
  - Asthenopia [Unknown]

NARRATIVE: CASE EVENT DATE: 20220101
